FAERS Safety Report 8568711-4 (Version None)
Quarter: 2012Q3

REPORT INFORMATION
  Report Type: 
  Country: None (occurrence: None)
  Receive Date: 20120803
  Receipt Date: 20120314
  Transmission Date: 20120928
  Serious: No
  Sender: FDA-Public Use
  Company Number: US-ABBOTT-12P-163-0915334-00

PATIENT
  Sex: Female

DRUGS (2)
  1. ZOCOR [Concomitant]
     Indication: PRODUCT USED FOR UNKNOWN INDICATION
  2. NIASPAN [Suspect]
     Indication: HIGH DENSITY LIPOPROTEIN DECREASED
     Dates: start: 20120201

REACTIONS (4)
  - ERYTHEMA [None]
  - LIP SWELLING [None]
  - FLUSHING [None]
  - SWOLLEN TONGUE [None]
